FAERS Safety Report 23609219 (Version 1)
Quarter: 2024Q1

REPORT INFORMATION
  Report Type: Report from Study
  Country: US (occurrence: US)
  Receive Date: 20240308
  Receipt Date: 20240308
  Transmission Date: 20240410
  Serious: Yes (Hospitalization, Other)
  Sender: FDA-Public Use
  Company Number: US-ABBVIE-5668544

PATIENT
  Sex: Female

DRUGS (4)
  1. SKYRIZI [Suspect]
     Active Substance: RISANKIZUMAB-RZAA
     Indication: Psoriasis
     Dosage: 150 MG FORM STRENGTH
     Route: 058
     Dates: start: 202308, end: 202308
  2. SKYRIZI [Suspect]
     Active Substance: RISANKIZUMAB-RZAA
     Dosage: WEEK 4?150 MG FORM STRENGTH
     Route: 058
     Dates: start: 20230519, end: 20230519
  3. SKYRIZI [Suspect]
     Active Substance: RISANKIZUMAB-RZAA
     Dosage: WEEK 0?150 MG FORM STRENGTH
     Route: 058
     Dates: start: 20230421, end: 20230421
  4. SKYRIZI [Suspect]
     Active Substance: RISANKIZUMAB-RZAA
     Dosage: 150 MG FORM STRENGTH
     Route: 058
     Dates: start: 202312

REACTIONS (6)
  - Medical device implantation [Unknown]
  - Burning sensation [Unknown]
  - Arthralgia [Recovering/Resolving]
  - Psoriasis [Unknown]
  - Psoriatic arthropathy [Recovering/Resolving]
  - Rash [Unknown]

NARRATIVE: CASE EVENT DATE: 20230101
